FAERS Safety Report 15657830 (Version 1)
Quarter: 2018Q4

REPORT INFORMATION
  Report Type: Spontaneous
  Country: US (occurrence: US)
  Receive Date: 20181126
  Receipt Date: 20181126
  Transmission Date: 20190205
  Serious: Yes (Hospitalization, Other)
  Sender: FDA-Public Use
  Company Number: US-SAKK-2018SA167188AA

PATIENT
  Age: 15 Year
  Sex: Female

DRUGS (7)
  1. BASILIXIMAB [Suspect]
     Active Substance: BASILIXIMAB
     Indication: IMMUNOSUPPRESSION
  2. MYCOPHENOLATE MOFETIL. [Suspect]
     Active Substance: MYCOPHENOLATE MOFETIL
     Indication: PROPHYLAXIS AGAINST GRAFT VERSUS HOST DISEASE
  3. METHYLPREDNISOLONE. [Suspect]
     Active Substance: METHYLPREDNISOLONE
     Indication: TRANSPLANT REJECTION
  4. THYMOGLOBULIN [Suspect]
     Active Substance: LAPINE T-LYMPHOCYTE IMMUNE GLOBULIN
  5. CYCLOSPORINE. [Suspect]
     Active Substance: CYCLOSPORINE
     Indication: PROPHYLAXIS AGAINST GRAFT VERSUS HOST DISEASE
  6. PREDNISONE. [Suspect]
     Active Substance: PREDNISONE
     Route: 048
  7. TAROLIMUS [Suspect]
     Active Substance: TACROLIMUS
     Indication: IMMUNOSUPPRESSION

REACTIONS (24)
  - Haemophilus infection [Unknown]
  - Dehydration [Unknown]
  - Hyperbilirubinaemia [Unknown]
  - Periorbital cellulitis [Unknown]
  - Cystitis haemorrhagic [Unknown]
  - Candida infection [Unknown]
  - Gastroenteritis viral [Unknown]
  - Campylobacter infection [Unknown]
  - Pneumonia [Unknown]
  - Malnutrition [Unknown]
  - Adenovirus infection [Unknown]
  - Polymerase chain reaction positive [Unknown]
  - Staphylococcal infection [Unknown]
  - Moraxella infection [Unknown]
  - Inappropriate schedule of product administration [Unknown]
  - Growth hormone deficiency [Unknown]
  - Renal failure [Not Recovered/Not Resolved]
  - Bacteraemia [Unknown]
  - Alpha haemolytic streptococcal infection [Unknown]
  - Bacterial pyelonephritis [Unknown]
  - BK virus infection [Recovered/Resolved]
  - Ovarian failure [Unknown]
  - Cytomegalovirus viraemia [Recovered/Resolved]
  - Human herpesvirus 6 infection [Unknown]
